FAERS Safety Report 5624194-5 (Version None)
Quarter: 2008Q1

REPORT INFORMATION
  Report Type: 
  Country: None (occurrence: None)
  Receive Date: 20080208
  Receipt Date: 20080126
  Transmission Date: 20080703
  Serious: Yes (Death)
  Sender: FDA-Public Use
  Company Number: MPS1-1000017

PATIENT
  Age: 18 Year
  Sex: Male
  Weight: 90 kg

DRUGS (4)
  1. ALDURAZYME [Suspect]
     Indication: MUCOPOLYSACCHARIDOSIS
     Dosage: 1.74 MG, ONCE, INTRATHECAL, INTRAVENOUS
     Route: 037
     Dates: start: 19980313, end: 20080101
  2. ALDURAZYME [Suspect]
     Indication: MUCOPOLYSACCHARIDOSIS
     Dosage: 1.74 MG, ONCE, INTRATHECAL, INTRAVENOUS
     Route: 037
     Dates: start: 20080124, end: 20080124
  3. BENADRYL (DIPHENHYDRAMINE HYDROCHLORIDE) SOLUTION FOR INFUSION [Concomitant]
  4. ADVIL [Concomitant]

REACTIONS (6)
  - HEADACHE [None]
  - HYPERSENSITIVITY [None]
  - INFUSION RELATED REACTION [None]
  - INTRACRANIAL PRESSURE INCREASED [None]
  - NECK PAIN [None]
  - SELF-MEDICATION [None]
